FAERS Safety Report 25428059 (Version 1)
Quarter: 2025Q2

REPORT INFORMATION
  Report Type: Spontaneous
  Country: US (occurrence: US)
  Receive Date: 20250612
  Receipt Date: 20250612
  Transmission Date: 20250717
  Serious: Yes (Other)
  Sender: TEVA
  Company Number: US-TEVA-VS-3340196

PATIENT
  Age: 64 Year
  Sex: Male

DRUGS (2)
  1. ADRUCIL [Suspect]
     Active Substance: FLUOROURACIL
     Indication: Chemotherapy
     Route: 065
     Dates: start: 20250520
  2. ADRUCIL [Suspect]
     Active Substance: FLUOROURACIL
     Indication: Chemotherapy
     Route: 065
     Dates: start: 20250603

REACTIONS (5)
  - Cardiotoxicity [Unknown]
  - Discontinued product administered [Unknown]
  - Expired product administered [Unknown]
  - Chest discomfort [Recovering/Resolving]
  - Chest pain [Recovering/Resolving]

NARRATIVE: CASE EVENT DATE: 20250501
